FAERS Safety Report 8985205 (Version 2)
Quarter: 2013Q1

REPORT INFORMATION
  Report Type: Spontaneous
  Country: GB (occurrence: GB)
  Receive Date: 20121226
  Receipt Date: 20130117
  Transmission Date: 20140127
  Serious: Yes (Other)
  Sender: FDA-Public Use
  Company Number: GB-PFIZER INC-2012327988

PATIENT
  Age: 62 Year
  Sex: Male

DRUGS (6)
  1. AMIODARONE HCL [Suspect]
     Indication: ARRHYTHMIA
     Dosage: 600 MG, 3X/DAY
     Route: 065
     Dates: start: 200711
  2. AMIODARONE HCL [Suspect]
     Dosage: 200 MG, UNK
     Dates: end: 20120319
  3. BISOPROLOL [Concomitant]
  4. SIMVASTATIN [Concomitant]
  5. ADCAL-D3 [Concomitant]
  6. WARFARIN SODIUM [Concomitant]

REACTIONS (8)
  - Optic nerve infarction [Not Recovered/Not Resolved]
  - Vision blurred [Not Recovered/Not Resolved]
  - Blindness [Not Recovered/Not Resolved]
  - Erythema [Not Recovered/Not Resolved]
  - Paraesthesia [Not Recovered/Not Resolved]
  - Gingival bleeding [Recovered/Resolved]
  - Glossodynia [Unknown]
  - Drug ineffective [Not Recovered/Not Resolved]
